FAERS Safety Report 10272523 (Version 1)
Quarter: 2014Q3

REPORT INFORMATION
  Report Type: Spontaneous
  Country: US (occurrence: US)
  Receive Date: 20140702
  Receipt Date: 20140702
  Transmission Date: 20150326
  Serious: Yes (Other)
  Sender: FDA-Public Use
  Company Number: US-BAYER-2014-096711

PATIENT
  Age: 28 Year
  Sex: Male
  Weight: 65.76 kg

DRUGS (1)
  1. ALEVE [Suspect]
     Active Substance: NAPROXEN SODIUM
     Indication: BACK PAIN
     Dosage: 2 DF, PRN
     Route: 048

REACTIONS (6)
  - Gastritis [Unknown]
  - Lipase increased [None]
  - Overdose [Unknown]
  - Chest pain [Not Recovered/Not Resolved]
  - Pain [None]
  - Abdominal pain [Not Recovered/Not Resolved]

NARRATIVE: CASE EVENT DATE: 20140624
